FAERS Safety Report 24631441 (Version 1)
Quarter: 2024Q4

REPORT INFORMATION
  Report Type: Spontaneous
  Country: FR (occurrence: FR)
  Receive Date: 20241118
  Receipt Date: 20241118
  Transmission Date: 20250115
  Serious: Yes (Other)
  Sender: SANOFI AVENTIS
  Company Number: None

PATIENT
  Age: 26 Year
  Sex: Female

DRUGS (5)
  1. LOVENOX [Suspect]
     Active Substance: ENOXAPARIN SODIUM
     Indication: Thrombosis prophylaxis
     Dosage: 100 IU/KG
     Route: 042
     Dates: start: 20240501, end: 20240503
  2. IODIXANOL [Suspect]
     Active Substance: IODIXANOL
     Indication: Scan with contrast
     Dosage: 110 ML
     Route: 042
     Dates: start: 20240430, end: 20240430
  3. TICAGRELOR [Concomitant]
     Active Substance: TICAGRELOR
     Dosage: UNK
     Route: 065
  4. KARDEGIC [Concomitant]
     Active Substance: ASPIRIN DL-LYSINE
     Dosage: UNK
     Route: 065
  5. ETHINYL ESTRADIOL\LEVONORGESTREL [Concomitant]
     Active Substance: ETHINYL ESTRADIOL\LEVONORGESTREL
     Dosage: UNK
     Route: 065

REACTIONS (1)
  - Rash maculo-papular [Recovered/Resolved]

NARRATIVE: CASE EVENT DATE: 20240503
